FAERS Safety Report 16206403 (Version 1)
Quarter: 2019Q2

REPORT INFORMATION
  Report Type: Spontaneous
  Country: US (occurrence: US)
  Receive Date: 20190313
  Receipt Date: 20190313
  Transmission Date: 20190711
  Serious: Yes (Hospitalization)
  Sender: FDA-Public Use
  Company Number: None

PATIENT
  Age: 53 Year
  Sex: Male
  Weight: 55.7 kg

DRUGS (1)
  1. CISPLATIN (119875) [Suspect]
     Active Substance: CISPLATIN
     Dosage: ?          OTHER DOSE:431.2 MG;?
     Dates: end: 20190221

REACTIONS (9)
  - Hypokalaemia [None]
  - Cough [None]
  - Dehydration [None]
  - Vomiting [None]
  - Nausea [None]
  - Rhinorrhoea [None]
  - Productive cough [None]
  - Pyrexia [None]
  - Hyponatraemia [None]

NARRATIVE: CASE EVENT DATE: 20190224
